FAERS Safety Report 9303685 (Version 1)
Quarter: 2013Q2

REPORT INFORMATION
  Report Type: Spontaneous
  Country: US (occurrence: None)
  Receive Date: 20130516
  Receipt Date: 20130516
  Transmission Date: 20140414
  Serious: Yes (Other)
  Sender: FDA-Public Use
  Company Number: AUR-APL-2013-03972

PATIENT
  Age: 91 Year
  Sex: Female

DRUGS (7)
  1. PANTOPRAZOLE (PANTOPRAZOLE) [Suspect]
     Indication: PRODUCT USED FOR UNKNOWN INDICATION
  2. ASPIRINE [Suspect]
     Indication: PRODUCT USED FOR UNKNOWN INDICATION
  3. FOLATE [Suspect]
     Indication: PRODUCT USED FOR UNKNOWN INDICATION
  4. IRON [Suspect]
     Indication: PRODUCT USED FOR UNKNOWN INDICATION
  5. TOPROL [Suspect]
     Indication: PRODUCT USED FOR UNKNOWN INDICATION
  6. COLACE [Suspect]
     Indication: PRODUCT USED FOR UNKNOWN INDICATION
  7. DOCUSATE (DOCUSATE) [Concomitant]

REACTIONS (7)
  - Productive cough [None]
  - Dyspnoea [None]
  - Anaemia [None]
  - Haematochezia [None]
  - Gastrointestinal tract mucosal pigmentation [None]
  - Chest discomfort [None]
  - Decreased appetite [None]
